FAERS Safety Report 10198778 (Version 1)
Quarter: 2014Q2

REPORT INFORMATION
  Report Type: Spontaneous
  Country: DE (occurrence: DE)
  Receive Date: 20140527
  Receipt Date: 20140527
  Transmission Date: 20141212
  Serious: Yes (Congenital Anomaly)
  Sender: FDA-Public Use
  Company Number: DE-TEVA-482571GER

PATIENT
  Sex: 0

DRUGS (2)
  1. TERBINAFINE [Suspect]
     Route: 064
  2. FOLS?URE [Concomitant]
     Route: 064

REACTIONS (1)
  - Anencephaly [Not Recovered/Not Resolved]
